FAERS Safety Report 8559910-6 (Version None)
Quarter: 2012Q3

REPORT INFORMATION
  Report Type: 
  Country: None (occurrence: None)
  Receive Date: 20120802
  Receipt Date: 20120730
  Transmission Date: 20120928
  Serious: Yes (Other)
  Sender: FDA-Public Use
  Company Number: PHHY2012DE066036

PATIENT
  Age: 78 Year
  Sex: Male

DRUGS (1)
  1. LAMISIL [Suspect]
     Dosage: 250 MG, ONE TABLET IN THE MORNING AND ONE IN THE EVENING
     Route: 048
     Dates: start: 20120719, end: 20120730

REACTIONS (4)
  - ANXIETY [None]
  - MEDICATION ERROR [None]
  - DEPRESSED MOOD [None]
  - DEPRESSION [None]
